FAERS Safety Report 4562331-4 (Version None)
Quarter: 2005Q1

REPORT INFORMATION
  Report Type: 
  Country: None (occurrence: None)
  Receive Date: 20050121
  Receipt Date: 20050107
  Transmission Date: 20050727
  Serious: Yes (Hospitalization, Other)
  Sender: FDA-Public Use
  Company Number: USA-2004-0015949

PATIENT
  Age: 31 Year
  Sex: Female

DRUGS (11)
  1. MS CONTIN [Suspect]
     Indication: PAIN
     Dosage: 60 MG , Q12H,
  2. OXYCONTIN [Concomitant]
  3. MORPHINE SULFATE [Concomitant]
  4. OXYCONTIN [Concomitant]
  5. LITHIUM [Concomitant]
  6. ZOLOFT [Concomitant]
  7. PREMARIN [Concomitant]
  8. NEURONTIN [Concomitant]
  9. AMBIEN [Concomitant]
  10. ADALAT [Concomitant]
  11. LORAZEPAM [Concomitant]

REACTIONS (13)
  - ABDOMINAL PAIN [None]
  - CHILLS [None]
  - CONDITION AGGRAVATED [None]
  - DEPRESSION [None]
  - DISTURBANCE IN ATTENTION [None]
  - DIZZINESS [None]
  - DRUG INEFFECTIVE [None]
  - NAUSEA [None]
  - PAIN [None]
  - PANCREATITIS CHRONIC [None]
  - PYREXIA [None]
  - SUICIDAL IDEATION [None]
  - VOMITING [None]
